FAERS Safety Report 18345948 (Version 1)
Quarter: 2020Q4

REPORT INFORMATION
  Report Type: Spontaneous
  Country: CA (occurrence: CA)
  Receive Date: 20201005
  Receipt Date: 20201005
  Transmission Date: 20210114
  Serious: Yes (Other)
  Sender: FDA-Public Use
  Company Number: CA-SAMSUNG BIOEPIS-SB-2020-30247

PATIENT
  Age: 58 Year
  Sex: Female
  Weight: 57 kg

DRUGS (1)
  1. INFLIXIMAB [Suspect]
     Active Substance: INFLIXIMAB
     Indication: PRODUCT USED FOR UNKNOWN INDICATION
     Route: 042

REACTIONS (4)
  - Hyperhidrosis [Unknown]
  - Dizziness [Unknown]
  - Feeling hot [Unknown]
  - Blood pressure fluctuation [Unknown]
